FAERS Safety Report 9535791 (Version 2)
Quarter: 2013Q3

REPORT INFORMATION
  Report Type: Spontaneous
  Country: ES (occurrence: ES)
  Receive Date: 20130919
  Receipt Date: 20130919
  Transmission Date: 20140515
  Serious: Yes (Other)
  Sender: FDA-Public Use
  Company Number: ES-ROCHE-1269491

PATIENT
  Age: 73 Year
  Sex: Male

DRUGS (2)
  1. AVASTIN [Suspect]
     Indication: MACULOPATHY
     Route: 031
     Dates: start: 20130723, end: 20130723
  2. AVASTIN [Suspect]
     Indication: OFF LABEL USE

REACTIONS (2)
  - Endophthalmitis [Recovering/Resolving]
  - Suspected transmission of an infectious agent via product [Unknown]
